FAERS Safety Report 5704112-1 (Version None)
Quarter: 2008Q2

REPORT INFORMATION
  Report Type: 
  Country: None (occurrence: None)
  Receive Date: 20080414
  Receipt Date: 20080403
  Transmission Date: 20081010
  Serious: Yes (Hospitalization, Other)
  Sender: FDA-Public Use
  Company Number: HQWYE652308OCT04

PATIENT
  Sex: Female

DRUGS (8)
  1. PREMPRO [Suspect]
     Indication: HORMONE REPLACEMENT THERAPY
  2. PROVERA [Suspect]
     Indication: MENOPAUSE
     Dosage: UNSPECIFIED
     Dates: start: 19900101, end: 20010101
  3. PROVERA [Suspect]
     Indication: OSTEOPOROSIS
  4. PROVERA [Suspect]
     Indication: OSTEOPOROSIS PROPHYLAXIS
  5. PREMPHASE 14/14 [Suspect]
     Indication: MENOPAUSE
     Dosage: UNSPECIFIED
     Dates: start: 19900101, end: 20010101
  6. PREMPHASE 14/14 [Suspect]
     Indication: OSTEOPOROSIS PROPHYLAXIS
  7. PREMARIN [Suspect]
     Indication: MENOPAUSE
     Dosage: UNSPECIFIED
     Dates: start: 19900101, end: 20010101
  8. PREMARIN [Suspect]
     Indication: OSTEOPOROSIS PROPHYLAXIS

REACTIONS (1)
  - BREAST CANCER METASTATIC [None]
